FAERS Safety Report 12992400 (Version 4)
Quarter: 2017Q2

REPORT INFORMATION
  Report Type: Report from Study
  Country: GB (occurrence: GB)
  Receive Date: 20161202
  Receipt Date: 20170608
  Transmission Date: 20170830
  Serious: Yes (Hospitalization)
  Sender: FDA-Public Use
  Company Number: GB-UCBSA-2016025162

PATIENT
  Sex: Female

DRUGS (4)
  1. LACOSAMIDE. [Suspect]
     Active Substance: LACOSAMIDE
     Dosage: 100 MG, ONCE DAILY (QD)
  2. LACOSAMIDE. [Suspect]
     Active Substance: LACOSAMIDE
     Dosage: 100 MG, 2X/DAY (BID)
  3. LACOSAMIDE. [Suspect]
     Active Substance: LACOSAMIDE
     Dosage: 50 MG AM AND 100 MG PM
  4. LACOSAMIDE. [Suspect]
     Active Substance: LACOSAMIDE
     Indication: SEIZURE
     Dosage: 50 MG

REACTIONS (14)
  - Muscle disorder [Unknown]
  - Nausea [Unknown]
  - Malaise [Unknown]
  - Discomfort [Unknown]
  - Seizure [Unknown]
  - Unevaluable event [Unknown]
  - Oropharyngeal pain [Unknown]
  - Somnolence [Unknown]
  - Adverse drug reaction [Unknown]
  - Pain in extremity [Unknown]
  - Pruritus [Unknown]
  - Hypoaesthesia [Unknown]
  - Drug ineffective [Unknown]
  - Headache [Unknown]
